FAERS Safety Report 19299830 (Version 1)
Quarter: 2021Q2

REPORT INFORMATION
  Report Type: Report from Study
  Country: US (occurrence: US)
  Receive Date: 20210524
  Receipt Date: 20210524
  Transmission Date: 20210717
  Serious: Yes (Other)
  Sender: FDA-Public Use
  Company Number: US-SHIRE-US201905392

PATIENT
  Age: 54 Year
  Sex: Male

DRUGS (10)
  1. TEDUGLUTIDE [Suspect]
     Active Substance: TEDUGLUTIDE
     Indication: SHORT-BOWEL SYNDROME
     Dosage: 4.13 MILLIGRAM, 1X/DAY:QD
     Route: 058
     Dates: start: 20180608
  2. TEDUGLUTIDE [Suspect]
     Active Substance: TEDUGLUTIDE
     Dosage: 4.13 MILLIGRAM, 1X/DAY:QD
     Route: 058
     Dates: start: 20180608
  3. TEDUGLUTIDE [Suspect]
     Active Substance: TEDUGLUTIDE
     Indication: SHORT-BOWEL SYNDROME
     Dosage: 4.13 MILLIGRAM, 1X/DAY:QD
     Route: 058
     Dates: start: 20180608
  4. TEDUGLUTIDE [Suspect]
     Active Substance: TEDUGLUTIDE
     Indication: SHORT-BOWEL SYNDROME
     Dosage: 4.13 MILLIGRAM, 1X/DAY:QD
     Route: 058
     Dates: start: 20180608
  5. TEDUGLUTIDE [Suspect]
     Active Substance: TEDUGLUTIDE
     Dosage: 4.13 MILLIGRAM, 1X/DAY:QD
     Route: 058
     Dates: start: 20180608
  6. TEDUGLUTIDE [Suspect]
     Active Substance: TEDUGLUTIDE
     Indication: SHORT-BOWEL SYNDROME
     Dosage: 4.13 MILLIGRAM, 1X/DAY:QD
     Route: 058
     Dates: start: 20180608
  7. LOVENOX [Concomitant]
     Active Substance: ENOXAPARIN SODIUM
     Indication: PRODUCT USED FOR UNKNOWN INDICATION
  8. TEDUGLUTIDE [Suspect]
     Active Substance: TEDUGLUTIDE
     Dosage: 4.13 MILLIGRAM, 1X/DAY:QD
     Route: 058
     Dates: start: 20180608
  9. TEDUGLUTIDE [Suspect]
     Active Substance: TEDUGLUTIDE
     Dosage: 4.13 MILLIGRAM, 1X/DAY:QD
     Route: 058
     Dates: start: 20180608
  10. COUMADIN [Concomitant]
     Active Substance: WARFARIN SODIUM
     Indication: PRODUCT USED FOR UNKNOWN INDICATION

REACTIONS (4)
  - Rectal haemorrhage [Unknown]
  - Hypophagia [Unknown]
  - Product dose omission issue [Unknown]
  - Oral pain [Unknown]

NARRATIVE: CASE EVENT DATE: 20190114
